FAERS Safety Report 7008857-5 (Version None)
Quarter: 2010Q3

REPORT INFORMATION
  Report Type: 
  Country: None (occurrence: None)
  Receive Date: 20100923
  Receipt Date: 20100914
  Transmission Date: 20110219
  Serious: Yes (Hospitalization)
  Sender: FDA-Public Use
  Company Number: US-BIOGENIDEC-2009BI020626

PATIENT
  Sex: Male

DRUGS (12)
  1. TYSABRI [Suspect]
     Indication: MULTIPLE SCLEROSIS
     Route: 042
     Dates: start: 20070723, end: 20090518
  2. TYSABRI [Suspect]
     Route: 042
     Dates: start: 20100216
  3. PAXIL [Concomitant]
  4. ZOCOR [Concomitant]
  5. MOBIC [Concomitant]
  6. AMANTADINE [Concomitant]
  7. ULTRAM [Concomitant]
  8. RISPERIDONE [Concomitant]
  9. BACLOFEN [Concomitant]
  10. TYLENOL [Concomitant]
  11. MULTI-VITAMIN [Concomitant]
  12. ZANAFLEX [Concomitant]

REACTIONS (26)
  - CYSTITIS [None]
  - DECUBITUS ULCER [None]
  - DIZZINESS [None]
  - DYSURIA [None]
  - ENTEROCOCCAL INFECTION [None]
  - HEADACHE [None]
  - HYPOTENSION [None]
  - INFECTED SKIN ULCER [None]
  - INFECTION [None]
  - LOSS OF CONSCIOUSNESS [None]
  - MUSCLE SPASMS [None]
  - MUSCULAR WEAKNESS [None]
  - PNEUMONIA [None]
  - PYREXIA [None]
  - RASH [None]
  - RASH MACULAR [None]
  - SENSORY LOSS [None]
  - SEPSIS [None]
  - STAPHYLOCOCCAL INFECTION [None]
  - TRIGEMINAL NEURALGIA [None]
  - URINARY INCONTINENCE [None]
  - URINARY TRACT INFECTION [None]
  - URINARY TRACT INFECTION ENTEROCOCCAL [None]
  - URINARY TRACT INFECTION STAPHYLOCOCCAL [None]
  - URTICARIA [None]
  - VOLVULUS [None]
